FAERS Safety Report 17689741 (Version 2)
Quarter: 2020Q2

REPORT INFORMATION
  Report Type: Spontaneous
  Country: US (occurrence: US)
  Receive Date: 20200421
  Receipt Date: 20200616
  Transmission Date: 20200714
  Serious: No
  Sender: FDA-Public Use
  Company Number: NVSC2020US105162

PATIENT
  Sex: Male

DRUGS (3)
  1. AFINITOR [Suspect]
     Active Substance: EVEROLIMUS
     Indication: METASTASIS
     Dosage: 5 MG, QD
     Route: 065
     Dates: start: 20200330
  2. LENVIMA [Suspect]
     Active Substance: LENVATINIB
     Indication: METASTASIS
     Dosage: 18 MG, QD
     Route: 048
     Dates: start: 20200330
  3. LENVIMA [Suspect]
     Active Substance: LENVATINIB
     Dosage: UNK
     Route: 065

REACTIONS (6)
  - Arthralgia [Unknown]
  - Fatigue [Not Recovered/Not Resolved]
  - Muscular weakness [Recovering/Resolving]
  - Pruritus [Recovering/Resolving]
  - Blood pressure increased [Recovering/Resolving]
  - Constipation [Recovered/Resolved]
